FAERS Safety Report 22595780 (Version 9)
Quarter: 2024Q2

REPORT INFORMATION
  Report Type: Report from Study
  Country: US (occurrence: US)
  Receive Date: 20230613
  Receipt Date: 20240405
  Transmission Date: 20240716
  Serious: Yes (Hospitalization, Other)
  Sender: FDA-Public Use
  Company Number: US-JAZZ PHARMACEUTICALS-2023-US-012437

PATIENT
  Age: 30 Year
  Sex: Female

DRUGS (7)
  1. XYWAV [Suspect]
     Active Substance: CALCIUM OXYBATE\MAGNESIUM OXYBATE\POTASSIUM OXYBATE\SODIUM OXYBATE
     Indication: Hypersomnia
     Dosage: 4.5 GRAM
     Route: 048
     Dates: start: 202206
  2. XYWAV [Suspect]
     Active Substance: CALCIUM OXYBATE\MAGNESIUM OXYBATE\POTASSIUM OXYBATE\SODIUM OXYBATE
     Dosage: 3.75 GRAM
     Route: 048
  3. XYWAV [Suspect]
     Active Substance: CALCIUM OXYBATE\MAGNESIUM OXYBATE\POTASSIUM OXYBATE\SODIUM OXYBATE
     Dosage: 4.5 GRAM, BID
  4. XYWAV [Suspect]
     Active Substance: CALCIUM OXYBATE\MAGNESIUM OXYBATE\POTASSIUM OXYBATE\SODIUM OXYBATE
     Dosage: 3.75 GRAM, BID
  5. XYWAV [Suspect]
     Active Substance: CALCIUM OXYBATE\MAGNESIUM OXYBATE\POTASSIUM OXYBATE\SODIUM OXYBATE
     Dosage: FIRST DOSE OF 4 GRAM AND SECOND DOSE OF 3.5 GRAM
     Dates: start: 20240206
  6. UBRELVY [Concomitant]
     Active Substance: UBROGEPANT
     Indication: Product used for unknown indication
     Dosage: UNK
     Dates: start: 20230314
  7. DELSYM [Concomitant]
     Active Substance: DEXTROMETHORPHAN
     Indication: Product used for unknown indication
     Dosage: 30 MG/5 ML
     Dates: start: 20230510

REACTIONS (24)
  - Chest injury [Unknown]
  - Bipolar disorder [Unknown]
  - Cestode infection [Unknown]
  - Hospitalisation [Unknown]
  - Surgery [Unknown]
  - Large intestine operation [Unknown]
  - Apnoea [Recovered/Resolved]
  - Unevaluable event [Unknown]
  - Insomnia [Recovered/Resolved]
  - Somnolence [Unknown]
  - Dizziness [Unknown]
  - Therapeutic product effect prolonged [Unknown]
  - Weight decreased [Unknown]
  - Adverse drug reaction [Unknown]
  - Drug tolerance [Unknown]
  - Malaise [Unknown]
  - Nausea [Recovered/Resolved]
  - Acne [Unknown]
  - Dry mouth [Unknown]
  - Nasopharyngitis [Unknown]
  - Dental caries [Unknown]
  - Polyp [Unknown]
  - Product administration interrupted [Unknown]
  - Intentional dose omission [Unknown]

NARRATIVE: CASE EVENT DATE: 20230822
